FAERS Safety Report 6553924-3 (Version None)
Quarter: 2010Q1

REPORT INFORMATION
  Report Type: 
  Country: None (occurrence: None)
  Receive Date: 20100127
  Receipt Date: 20100115
  Transmission Date: 20100710
  Serious: Yes (Life-Threatening, Hospitalization, Other)
  Sender: FDA-Public Use
  Company Number: JP-PFIZER INC-2009282056

PATIENT
  Age: 68 Year
  Sex: Female
  Weight: 48.9 kg

DRUGS (8)
  1. FARMORUBICIN [Suspect]
     Indication: BREAST CANCER
     Dosage: 1200 MG/3WEEKS INJ
     Route: 042
     Dates: start: 20090212, end: 20090423
  2. ENDOXAN [Concomitant]
     Indication: BREAST CANCER
     Dosage: 950 MG/3WEEKS
     Route: 042
     Dates: start: 20090212, end: 20090423
  3. GRANISETRON [Concomitant]
     Indication: BREAST CANCER
     Dosage: 3 MG/3WEEKS
     Route: 042
     Dates: start: 20090212, end: 20090423
  4. DEXAMETHASONE SODIUM PHOSPHATE [Concomitant]
     Indication: BREAST CANCER
     Dosage: 12 MG/3WEEKS
     Route: 042
     Dates: start: 20090212, end: 20090423
  5. ONON [Concomitant]
     Indication: ASTHMA
     Dosage: UNK
     Route: 048
  6. THEO-DUR [Concomitant]
     Indication: ASTHMA
     Dosage: UNK
     Route: 048
  7. TAKEPRON [Concomitant]
     Indication: GASTRIC ULCER
     Dosage: UNK
     Route: 048
     Dates: start: 20090212, end: 20090429
  8. FUNGIZONE [Concomitant]
     Dosage: UNK
     Route: 048
     Dates: start: 20090421, end: 20090430

REACTIONS (1)
  - PNEUMOCYSTIS JIROVECI PNEUMONIA [None]
